FAERS Safety Report 24608700 (Version 1)
Quarter: 2024Q4

REPORT INFORMATION
  Report Type: Spontaneous
  Country: TR (occurrence: TR)
  Receive Date: 20241112
  Receipt Date: 20241112
  Transmission Date: 20250115
  Serious: Yes (Hospitalization, Other)
  Sender: AMNEAL
  Company Number: TR-AMNEAL PHARMACEUTICALS-2024-AMRX-04031

PATIENT
  Age: 74 Year
  Sex: Female

DRUGS (2)
  1. ZOLEDRONIC ACID [Suspect]
     Active Substance: ZOLEDRONIC ACID
     Indication: Product used for unknown indication
     Dosage: 5 MILLIGRAM OF ZOLEDRONIC ACID WAS GIVEN IN 100 ML OF NORMAL SALINE (INTRAVENOUS INFUSION FOR 15 MIN
     Route: 042
     Dates: start: 20230310
  2. PREDNISOLONE [Concomitant]
     Active Substance: PREDNISOLONE
     Indication: Spondyloarthropathy
     Dosage: 2.5 MILLIGRAM
     Route: 065
     Dates: start: 202110

REACTIONS (1)
  - Pancreatitis acute [Recovered/Resolved]
